FAERS Safety Report 7535370-9 (Version None)
Quarter: 2011Q2

REPORT INFORMATION
  Report Type: 
  Country: None (occurrence: None)
  Receive Date: 20110609
  Receipt Date: 20080218
  Transmission Date: 20111010
  Serious: Yes (Death, Other)
  Sender: FDA-Public Use
  Company Number: PHMT2006CA01796

PATIENT
  Sex: Female

DRUGS (8)
  1. CLOZAPINE [Suspect]
     Indication: BIPOLAR DISORDER
     Dosage: 162.5 MG, QD
     Route: 048
     Dates: start: 20031021
  2. RABEPRAZOLE SODIUM [Concomitant]
  3. RAMIPRIL [Concomitant]
  4. TAXOTERE [Concomitant]
  5. CHEMOTHERAPEUTICS,OTHER [Suspect]
     Indication: BREAST CANCER
  6. SYNTHROID [Concomitant]
  7. CLONAZEPAM [Concomitant]
  8. VALPROATE SODIUM [Concomitant]

REACTIONS (9)
  - AGRANULOCYTOSIS [None]
  - ERYTHEMA [None]
  - BREAST CANCER METASTATIC [None]
  - NEUTROPHIL COUNT DECREASED [None]
  - ALOPECIA [None]
  - WHITE BLOOD CELL COUNT DECREASED [None]
  - BREAST CANCER [None]
  - METASTASES TO LIVER [None]
  - SKIN EXFOLIATION [None]
